FAERS Safety Report 11888792 (Version 2)
Quarter: 2016Q1

REPORT INFORMATION
  Report Type: Report from Study
  Country: US (occurrence: US)
  Receive Date: 20160105
  Receipt Date: 20160112
  Transmission Date: 20160526
  Serious: Yes (Hospitalization)
  Sender: FDA-Public Use
  Company Number: US-JNJFOC-20151222296

PATIENT
  Age: 74 Year
  Sex: Male

DRUGS (1)
  1. IMBRUVICA [Suspect]
     Active Substance: IBRUTINIB
     Indication: CHRONIC LYMPHOCYTIC LEUKAEMIA
     Route: 048
     Dates: start: 20151019, end: 20151219

REACTIONS (3)
  - Gastric disorder [Unknown]
  - Diarrhoea [Unknown]
  - Pyrexia [Unknown]

NARRATIVE: CASE EVENT DATE: 2015
